FAERS Safety Report 6993893-5 (Version None)
Quarter: 2010Q3

REPORT INFORMATION
  Report Type: 
  Country: None (occurrence: None)
  Receive Date: 20100917
  Receipt Date: 20100412
  Transmission Date: 20110219
  Serious: No
  Sender: FDA-Public Use
  Company Number: US-ASTRAZENECA-2010SE10699

PATIENT
  Age: 52 Year
  Sex: Female
  Weight: 122 kg

DRUGS (12)
  1. SEROQUEL [Suspect]
     Indication: MOOD SWINGS
     Route: 048
  2. SEROQUEL [Suspect]
     Route: 048
  3. SEROQUEL [Suspect]
     Dosage: 400-600 MG
     Route: 048
  4. SEROQUEL [Suspect]
     Route: 048
     Dates: end: 20100307
  5. REQUIP [Concomitant]
  6. LORAZEPAM [Concomitant]
  7. BENZTROPINE MESYLATE [Concomitant]
  8. BENADRYL [Concomitant]
  9. LITHCARB [Concomitant]
     Indication: BIPOLAR DISORDER
     Route: 048
     Dates: start: 20090817
  10. BUDEPIRON XL [Concomitant]
     Indication: BIPOLAR DISORDER
     Route: 048
     Dates: start: 20090709, end: 20091222
  11. GEODON [Concomitant]
     Indication: BIPOLAR DISORDER
     Route: 048
  12. GEODON [Concomitant]
     Route: 048

REACTIONS (7)
  - ASTHMA [None]
  - DRUG INEFFECTIVE [None]
  - DYSTONIA [None]
  - EXTRAPYRAMIDAL DISORDER [None]
  - MYOCLONUS [None]
  - STEREOTYPY [None]
  - TARDIVE DYSKINESIA [None]
